FAERS Safety Report 6124967-9 (Version None)
Quarter: 2009Q1

REPORT INFORMATION
  Report Type: 
  Country: None (occurrence: None)
  Receive Date: 20090319
  Receipt Date: 20090310
  Transmission Date: 20090719
  Serious: No
  Sender: FDA-Public Use
  Company Number: US-B.I. PHARMACEUTICALS,INC./RIDGEFIELD-2009-BP-03090BP

PATIENT
  Sex: Male

DRUGS (6)
  1. ATROVENT [Suspect]
     Indication: NASOPHARYNGITIS
     Dosage: 2 SPRAYS TID OR QID
     Dates: start: 20080901, end: 20080901
  2. HYTRIN [Concomitant]
     Indication: BENIGN PROSTATIC HYPERPLASIA
     Dates: start: 19940101
  3. HYTRIN [Concomitant]
     Indication: HYPERTENSION
  4. MAXZIDE [Concomitant]
     Indication: HYPERTENSION
  5. ASPIRIN [Concomitant]
     Indication: PROPHYLAXIS
     Dates: start: 19990101
  6. CALCIUM [Concomitant]
     Indication: PROPHYLAXIS
     Dosage: 1500MG
     Dates: start: 19990101

REACTIONS (4)
  - NASAL CONGESTION [None]
  - NASAL DRYNESS [None]
  - RHINALGIA [None]
  - SLEEP DISORDER [None]
